FAERS Safety Report 21063006 (Version 1)
Quarter: 2022Q3

REPORT INFORMATION
  Report Type: Report from Study
  Country: US (occurrence: None)
  Receive Date: 20220711
  Receipt Date: 20220711
  Transmission Date: 20221027
  Serious: Yes (Other)
  Sender: FDA-Public Use
  Company Number: US-ROCHE-2424899

PATIENT
  Age: 80 Year

DRUGS (3)
  1. PLACEBO [Suspect]
     Active Substance: UNSPECIFIED INGREDIENT
     Indication: Colorectal cancer metastatic
     Dosage: OVER 30-60 MINUTES ON DAY 1 (AS PER PROTOCOL)
     Route: 042
     Dates: start: 20180222
  2. BEVACIZUMAB [Suspect]
     Active Substance: BEVACIZUMAB
     Indication: Colorectal cancer metastatic
     Route: 042
     Dates: start: 20180222
  3. CAPECITABINE [Suspect]
     Active Substance: CAPECITABINE
     Indication: Colorectal cancer metastatic
     Dosage: DOSE: 850 OR 1000 MG/M^2
     Route: 048
     Dates: start: 20180222

REACTIONS (2)
  - Hypertension [Unknown]
  - Proteinuria [Unknown]

NARRATIVE: CASE EVENT DATE: 20180627
